FAERS Safety Report 13071890 (Version 1)
Quarter: 2016Q4

REPORT INFORMATION
  Report Type: Spontaneous
  Country: DE (occurrence: DE)
  Receive Date: 20161229
  Receipt Date: 20161229
  Transmission Date: 20170207
  Serious: Yes (Other)
  Sender: FDA-Public Use
  Company Number: DE-PFIZER INC-2016537100

PATIENT
  Age: 32 Year
  Sex: Female
  Weight: 62 kg

DRUGS (1)
  1. DEPO-CLINOVIR [Suspect]
     Active Substance: MEDROXYPROGESTERONE ACETATE
     Indication: CONTRACEPTION
     Dosage: UNK
     Route: 030
     Dates: start: 2011, end: 20160831

REACTIONS (3)
  - Drug ineffective [Unknown]
  - Unintended pregnancy [Unknown]
  - Abortion missed [Unknown]

NARRATIVE: CASE EVENT DATE: 20161201
